FAERS Safety Report 9825074 (Version 1)
Quarter: 2013Q4

REPORT INFORMATION
  Report Type: Spontaneous
  Country: GB (occurrence: None)
  Receive Date: 20131031
  Receipt Date: 20131031
  Transmission Date: 20140711
  Serious: Yes (Other)
  Sender: FDA-Public Use
  Company Number: 2013S1000034

PATIENT
  Sex: 0

DRUGS (1)
  1. KRYSTEXXA [Suspect]
     Indication: GOUTY TOPHUS
     Route: 042

REACTIONS (2)
  - Therapeutic response decreased [None]
  - Blood uric acid decreased [None]
